FAERS Safety Report 9933594 (Version 1)
Quarter: 2014Q1

REPORT INFORMATION
  Report Type: Report from Study
  Country: US (occurrence: US)
  Receive Date: 20140228
  Receipt Date: 20140228
  Transmission Date: 20141002
  Serious: No
  Sender: FDA-Public Use
  Company Number: US-MYLANLABS-2013S1025829

PATIENT
  Age: 44 Year
  Sex: Male

DRUGS (3)
  1. AMNESTEEM CAPSULES [Suspect]
     Indication: ACNE
     Route: 048
     Dates: start: 20131024, end: 20131030
  2. AMNESTEEM CAPSULES [Suspect]
     Indication: ACNE
     Route: 048
     Dates: start: 20131101
  3. VITAMIN C [Concomitant]
     Route: 048
     Dates: start: 20131110

REACTIONS (2)
  - Epistaxis [Recovered/Resolved]
  - Dry skin [Not Recovered/Not Resolved]
